FAERS Safety Report 4525072-5 (Version None)
Quarter: 2004Q4

REPORT INFORMATION
  Report Type: 
  Country: None (occurrence: None)
  Receive Date: 20041213
  Receipt Date: 20041130
  Transmission Date: 20050328
  Serious: Yes (Death)
  Sender: FDA-Public Use
  Company Number: PHBS2004IL16566

PATIENT
  Sex: Male

DRUGS (1)
  1. GLEEVEC [Suspect]
     Route: 065

REACTIONS (1)
  - DEATH [None]
